FAERS Safety Report 18004746 (Version 1)
Quarter: 2020Q3

REPORT INFORMATION
  Report Type: Spontaneous
  Country: DK (occurrence: DK)
  Receive Date: 20200709
  Receipt Date: 20200709
  Transmission Date: 20201103
  Serious: Yes (Death, Hospitalization)
  Sender: FDA-Public Use
  Company Number: NVSC2020DK190674

PATIENT
  Age: 75 Year
  Sex: Male

DRUGS (8)
  1. MORPHINE [Concomitant]
     Active Substance: MORPHINE
     Indication: PRODUCT USED FOR UNKNOWN INDICATION
     Dosage: UNK (STYRKE: UKENDTDOSIS: UKENDT)
     Route: 048
  2. ACETYLCYSTEINE. [Concomitant]
     Active Substance: ACETYLCYSTEINE
     Indication: PRODUCT USED FOR UNKNOWN INDICATION
     Dosage: UNK (STYRKE: UKENDTDOSIS: UKENDT)(STARTDATO UKENDT)
     Route: 065
  3. PARACETAMOL [Concomitant]
     Active Substance: ACETAMINOPHEN
     Indication: PAIN
     Dosage: 4000 MG, QD (STYRKE: 500 MG)(STARTDATO UKENDT MEN I HVERT FALD SIDEN NOV 2019 )
     Route: 048
  4. CARBOPLATIN. [Suspect]
     Active Substance: CARBOPLATIN
     Indication: LUNG NEOPLASM MALIGNANT
     Dosage: 560 MG (STYRKE: 10 MG/ML)
     Route: 042
     Dates: start: 20200513, end: 20200513
  5. PANTOPRAZOLE [Concomitant]
     Active Substance: PANTOPRAZOLE
     Indication: PRODUCT USED FOR UNKNOWN INDICATION
     Dosage: UNK (STYRKE: UKENDTDOSIS: UKENDT)
     Route: 065
  6. VINORELBINE [Suspect]
     Active Substance: VINORELBINE TARTRATE
     Indication: LUNG NEOPLASM MALIGNANT
     Dosage: UNK (STYRKE: UKENDTDOSIS: 90 MG D. 13MAJ2020 OG 110 MG D. 20MAJ2020)
     Route: 048
     Dates: start: 20200513, end: 20200520
  7. ELOCON [Concomitant]
     Active Substance: MOMETASONE FUROATE
     Indication: PSORIASIS
     Dosage: UNK (STYRKE: 0,1%DOSIS: EFTER AFTALESTYRKE: 0,1%DOSIS: EFTER AFTALE)
     Route: 003
     Dates: start: 20190808
  8. ACITRETIN. [Concomitant]
     Active Substance: ACITRETIN
     Indication: PSORIASIS
     Dosage: 10 MG, QD (STYRKE: 10 MG)(UKENDT STARTDATO MEN I HVERT FALD SIDEN JULI 2018)
     Route: 048

REACTIONS (5)
  - General physical health deterioration [Unknown]
  - Myelosuppression [Fatal]
  - Pancytopenia [Fatal]
  - Sepsis [Fatal]
  - Septic shock [Fatal]

NARRATIVE: CASE EVENT DATE: 202005
